FAERS Safety Report 10088929 (Version 2)
Quarter: 2014Q2

REPORT INFORMATION
  Report Type: Report from Study
  Country: DE (occurrence: DE)
  Receive Date: 20140421
  Receipt Date: 20140522
  Transmission Date: 20141212
  Serious: Yes (Hospitalization)
  Sender: FDA-Public Use
  Company Number: PHHO2014DE005506

PATIENT
  Sex: 0

DRUGS (5)
  1. CGS 20267 [Suspect]
     Indication: BREAST CANCER
     Dosage: 2.5 MG, DAILY
     Route: 048
     Dates: start: 20110822
  2. EPIRUBICIN [Suspect]
     Indication: BREAST CANCER
     Dosage: 176 MG, Q3W
     Route: 042
     Dates: start: 20110211, end: 20110325
  3. FLUOROURACIL [Suspect]
     Indication: BREAST CANCER
     Dosage: 880 MG, Q3W
     Route: 042
     Dates: start: 20110211, end: 20110325
  4. DOCETAXEL [Suspect]
     Indication: BREAST CANCER
     Dosage: 178 MG, Q3W
     Route: 042
     Dates: start: 20110415, end: 20110527
  5. CYCLOPHOSPHAMIDE [Suspect]
     Indication: BREAST CANCER
     Dosage: 880 MG, Q3W
     Route: 042
     Dates: start: 20110211, end: 20110325

REACTIONS (2)
  - Renal cell carcinoma [Recovered/Resolved]
  - Second primary malignancy [Recovered/Resolved]
